FAERS Safety Report 17576268 (Version 1)
Quarter: 2020Q1

REPORT INFORMATION
  Report Type: Spontaneous
  Country: IT (occurrence: IT)
  Receive Date: 20200324
  Receipt Date: 20200324
  Transmission Date: 20200409
  Serious: Yes (Other)
  Sender: FDA-Public Use
  Company Number: IT-SA-2020SA069547

PATIENT
  Age: 49 Year
  Sex: Male

DRUGS (2)
  1. INSULIN LISPRO [Interacting]
     Active Substance: INSULIN LISPRO
     Indication: DIABETES MELLITUS
     Dosage: 10 IU, QD
     Route: 058
     Dates: start: 20130828
  2. LANTUS [Suspect]
     Active Substance: INSULIN GLARGINE
     Indication: DIABETES MELLITUS
     Dosage: 6 IU, QD
     Route: 058
     Dates: start: 20081008

REACTIONS (6)
  - Hypoglycaemia [Recovering/Resolving]
  - Bradyphrenia [Recovering/Resolving]
  - Malaise [Recovering/Resolving]
  - Hypokinesia [Recovering/Resolving]
  - Drug interaction [Unknown]
  - Sopor [Recovering/Resolving]

NARRATIVE: CASE EVENT DATE: 20200203
